FAERS Safety Report 5533970-9 (Version None)
Quarter: 2007Q4

REPORT INFORMATION
  Report Type: 
  Country: None (occurrence: None)
  Receive Date: 20071129
  Receipt Date: 20071119
  Transmission Date: 20080405
  Serious: Yes (Life-Threatening)
  Sender: FDA-Public Use
  Company Number: GXKR2007LB09929

PATIENT
  Age: 33 Year
  Sex: Male

DRUGS (3)
  1. CISPLATIN [Suspect]
     Indication: TESTIS CANCER
  2. ETOPOSIDE [Suspect]
     Indication: TESTIS CANCER
  3. METHYLPREDNISOLONE [Suspect]
     Indication: TESTIS CANCER

REACTIONS (6)
  - CEREBRAL THROMBOSIS [None]
  - HEADACHE [None]
  - HEMIPLEGIA [None]
  - PAPILLOEDEMA [None]
  - PARTIAL SEIZURES [None]
  - SUBARACHNOID HAEMORRHAGE [None]
